FAERS Safety Report 7250015-3 (Version None)
Quarter: 2011Q1

REPORT INFORMATION
  Report Type: 
  Country: None (occurrence: None)
  Receive Date: 20110121
  Receipt Date: 20110121
  Transmission Date: 20110831
  Serious: No
  Sender: FDA-Public Use
  Company Number: None

PATIENT
  Age: 45 Year
  Sex: Female

DRUGS (1)
  1. LEXAPRO [Suspect]
     Dates: start: 20101213, end: 20101215

REACTIONS (14)
  - HYPERHIDROSIS [None]
  - PALPITATIONS [None]
  - FEELING ABNORMAL [None]
  - POOR QUALITY SLEEP [None]
  - PAIN [None]
  - BALANCE DISORDER [None]
  - PARAESTHESIA [None]
  - CONFUSIONAL STATE [None]
  - PANIC ATTACK [None]
  - MEMORY IMPAIRMENT [None]
  - FATIGUE [None]
  - APATHY [None]
  - CHEST DISCOMFORT [None]
  - REBOUND EFFECT [None]
